FAERS Safety Report 8052355-7 (Version None)
Quarter: 2012Q1

REPORT INFORMATION
  Report Type: 
  Country: None (occurrence: None)
  Receive Date: 20120118
  Receipt Date: 20120109
  Transmission Date: 20120608
  Serious: Yes (Hospitalization)
  Sender: FDA-Public Use
  Company Number: US-BAYER-2011-038358

PATIENT
  Age: 36 Year
  Sex: Female
  Weight: 98 kg

DRUGS (9)
  1. KLONOPIN [Concomitant]
  2. IMITREX [Concomitant]
  3. HYDROCHLOROTHIAZID [Concomitant]
  4. ATENOLOL [Concomitant]
  5. YASMIN [Suspect]
     Dosage: UNK
     Route: 048
     Dates: start: 20050915, end: 20080101
  6. PROZAC [Concomitant]
  7. PRILOSEC [Concomitant]
  8. FLONASE [Concomitant]
  9. LISINOPRIL [Concomitant]

REACTIONS (8)
  - DEEP VEIN THROMBOSIS [None]
  - QUALITY OF LIFE DECREASED [None]
  - FEAR [None]
  - PULMONARY EMBOLISM [None]
  - INJURY [None]
  - ANXIETY [None]
  - PAIN [None]
  - ANHEDONIA [None]
